FAERS Safety Report 25177692 (Version 1)
Quarter: 2025Q2

REPORT INFORMATION
  Report Type: Spontaneous
  Country: JP (occurrence: JP)
  Receive Date: 20250409
  Receipt Date: 20250409
  Transmission Date: 20250717
  Serious: Yes (Death)
  Sender: RECORDATI
  Company Number: JP-RECORDATI RARE DISEASE INC.-2025002266

PATIENT
  Age: 76 Year
  Sex: Female

DRUGS (1)
  1. ISTURISA [Suspect]
     Active Substance: OSILODROSTAT PHOSPHATE
     Indication: Pituitary-dependent Cushing^s syndrome
     Dosage: 2 MILLIGRAM, BID
     Route: 048
     Dates: start: 20250315, end: 20250324

REACTIONS (1)
  - Coronavirus pneumonia [Fatal]
